FAERS Safety Report 23743724 (Version 2)
Quarter: 2024Q2

REPORT INFORMATION
  Report Type: Report from Study
  Country: ES (occurrence: ES)
  Receive Date: 20240415
  Receipt Date: 20240429
  Transmission Date: 20240715
  Serious: Yes (Other)
  Sender: FDA-Public Use
  Company Number: ES-OTSUKA-2024_010344

PATIENT
  Sex: Male
  Weight: 75 kg

DRUGS (22)
  1. TOLVAPTAN [Suspect]
     Active Substance: TOLVAPTAN
     Indication: Congenital cystic kidney disease
     Dosage: 90 MG
     Route: 048
     Dates: start: 20181126
  2. TOLVAPTAN [Suspect]
     Active Substance: TOLVAPTAN
     Dosage: 30 MG
     Route: 048
     Dates: start: 20181126
  3. TOLVAPTAN [Suspect]
     Active Substance: TOLVAPTAN
     Dosage: 45 MG
     Route: 048
     Dates: start: 20180927
  4. TOLVAPTAN [Suspect]
     Active Substance: TOLVAPTAN
     Dosage: 15 MG
     Route: 048
     Dates: start: 20180927
  5. TOLVAPTAN [Suspect]
     Active Substance: TOLVAPTAN
     Dosage: 60 MG
     Route: 048
     Dates: start: 20181022
  6. TOLVAPTAN [Suspect]
     Active Substance: TOLVAPTAN
     Dosage: 30 MG
     Route: 048
     Dates: start: 20181022
  7. TOLVAPTAN [Suspect]
     Active Substance: TOLVAPTAN
     Dosage: 45 MG
     Route: 048
     Dates: start: 20200719
  8. TOLVAPTAN [Suspect]
     Active Substance: TOLVAPTAN
     Dosage: 15 MG
     Route: 048
     Dates: start: 20200719
  9. TOLVAPTAN [Suspect]
     Active Substance: TOLVAPTAN
     Dosage: 60 MG
     Route: 048
     Dates: start: 20200827
  10. TOLVAPTAN [Suspect]
     Active Substance: TOLVAPTAN
     Dosage: 30 MG
     Route: 048
     Dates: start: 20200827
  11. ALLOPURINOL [Concomitant]
     Active Substance: ALLOPURINOL
     Indication: Hyperuricaemia
     Dosage: 100 MG, QD
     Route: 048
     Dates: start: 20150513, end: 20230606
  12. SODIUM BICARBONATE [Concomitant]
     Active Substance: SODIUM BICARBONATE
     Indication: Metabolic acidosis
     Dosage: 1 G, QD
     Route: 048
     Dates: start: 20190802, end: 20200930
  13. SODIUM BICARBONATE [Concomitant]
     Active Substance: SODIUM BICARBONATE
     Dosage: 1 G, BID
     Route: 048
     Dates: start: 20201001, end: 20210202
  14. SODIUM BICARBONATE [Concomitant]
     Active Substance: SODIUM BICARBONATE
     Dosage: 3 G, QD
     Route: 048
     Dates: start: 20210203, end: 20230606
  15. CALCIFEDIOL [Concomitant]
     Active Substance: CALCIFEDIOL
     Indication: Vitamin supplementation
     Dosage: 0.266 G (TWICE PER MONTH)
     Route: 048
     Dates: start: 20191118, end: 20200827
  16. AMLODIPINE [Concomitant]
     Active Substance: AMLODIPINE BESYLATE
     Indication: Product used for unknown indication
     Dosage: 5 MG, QD
     Route: 048
     Dates: start: 20200110, end: 20200209
  17. AMLODIPINE [Concomitant]
     Active Substance: AMLODIPINE BESYLATE
     Dosage: 10 MG, QD
     Route: 048
     Dates: start: 20221130
  18. OLMESARTAN [Concomitant]
     Active Substance: OLMESARTAN
     Indication: Product used for unknown indication
     Dosage: 20 MG, QD
     Route: 048
     Dates: start: 20200210, end: 20200930
  19. OLMESARTAN [Concomitant]
     Active Substance: OLMESARTAN
     Dosage: 15 MG, QD
     Route: 048
     Dates: start: 20201001, end: 20210202
  20. OLMESARTAN [Concomitant]
     Active Substance: OLMESARTAN
     Dosage: 10 MG, QD
     Route: 048
     Dates: start: 20210203, end: 20221130
  21. OLMESARTAN [Concomitant]
     Active Substance: OLMESARTAN
     Dosage: 20 MG, QD
     Route: 048
     Dates: start: 20230504, end: 20230606
  22. OMEPRAZOLE [Concomitant]
     Active Substance: OMEPRAZOLE
     Indication: Gastrointestinal disorder
     Dosage: 20 MG, QD
     Route: 048
     Dates: start: 20130301

REACTIONS (1)
  - Acute kidney injury [Recovered/Resolved]

NARRATIVE: CASE EVENT DATE: 20200402
